FAERS Safety Report 5578505-X (Version None)
Quarter: 2007Q4

REPORT INFORMATION
  Report Type: 
  Country: None (occurrence: None)
  Receive Date: 20071227
  Receipt Date: 20071213
  Transmission Date: 20080405
  Serious: Yes (Disabling)
  Sender: FDA-Public Use
  Company Number: OSCN-NO-0604S-0100

PATIENT
  Age: 57 Year
  Sex: Male

DRUGS (2)
  1. OMNISCAN [Suspect]
     Indication: RENAL TRANSPLANT
     Dosage: 49 ML, SINGLE DOSE, I.V.
     Route: 042
     Dates: start: 20050624, end: 20050624
  2. FURIX [Concomitant]

REACTIONS (1)
  - NEPHROGENIC SYSTEMIC FIBROSIS [None]
